FAERS Safety Report 7526564-7 (Version None)
Quarter: 2011Q2

REPORT INFORMATION
  Report Type: 
  Country: None (occurrence: None)
  Receive Date: 20110606
  Receipt Date: 20110524
  Transmission Date: 20111010
  Serious: Yes (Other)
  Sender: FDA-Public Use
  Company Number: US-ELI_LILLY_AND_COMPANY-US201011005648

PATIENT
  Sex: Female

DRUGS (6)
  1. FORTEO [Suspect]
     Indication: OSTEOPOROSIS
     Dosage: 20 UG, DAILY (1/D)
     Route: 065
     Dates: start: 20091201, end: 20110225
  2. CITRACAL + D [Concomitant]
     Dosage: UNK, UNKNOWN
     Route: 065
  3. TUMS /00108001/ [Concomitant]
     Dosage: UNK, OCCASIONALLY
     Route: 065
  4. FORTEO [Suspect]
     Dosage: UNK
  5. VITAMIN B [Concomitant]
     Dosage: UNK, UNKNOWN
     Route: 065
  6. CHOLESTEROL [Concomitant]
     Dosage: UNK, UNKNOWN
     Route: 065

REACTIONS (11)
  - FEELING COLD [None]
  - COUGH [None]
  - FATIGUE [None]
  - ABSCESS ORAL [None]
  - FACIAL PAIN [None]
  - MUSCLE SPASMS [None]
  - BONE LOSS [None]
  - STRESS [None]
  - WEIGHT DECREASED [None]
  - DRUG DOSE OMISSION [None]
  - TOOTHACHE [None]
